FAERS Safety Report 20503056 (Version 2)
Quarter: 2022Q3

REPORT INFORMATION
  Report Type: Report from Study
  Country: GB (occurrence: GB)
  Receive Date: 20220222
  Receipt Date: 20220929
  Transmission Date: 20221026
  Serious: Yes (Death, Hospitalization, Other)
  Sender: FDA-Public Use
  Company Number: GB-GLAXOSMITHKLINE-GB2022EME028003

PATIENT

DRUGS (1)
  1. MEPOLIZUMAB [Suspect]
     Active Substance: MEPOLIZUMAB
     Indication: Asthma
     Dosage: 100 MG
     Dates: start: 202001, end: 202202

REACTIONS (11)
  - Death [Fatal]
  - Seizure [Unknown]
  - Screaming [Unknown]
  - Angiopathy [Unknown]
  - Infection [Unknown]
  - Nervous system disorder [Unknown]
  - Decreased appetite [Unknown]
  - Cough [Unknown]
  - Condition aggravated [Unknown]
  - Confusional state [Unknown]
  - Treatment noncompliance [Unknown]

NARRATIVE: CASE EVENT DATE: 20220101
